FAERS Safety Report 11932102 (Version 1)
Quarter: 2016Q1

REPORT INFORMATION
  Report Type: Spontaneous
  Country: US (occurrence: US)
  Receive Date: 20160120
  Receipt Date: 20160120
  Transmission Date: 20160526
  Serious: Yes (Other)
  Sender: FDA-Public Use
  Company Number: US-ELI_LILLY_AND_COMPANY-US201601003338

PATIENT
  Age: 67 Year
  Sex: Female

DRUGS (18)
  1. INFLUENZA VACCINE [Suspect]
     Active Substance: INFLUENZA VIRUS VACCINE
     Indication: PRODUCT USED FOR UNKNOWN INDICATION
     Dosage: UNK
     Dates: start: 20151020, end: 20151020
  2. CYMBALTA [Concomitant]
     Active Substance: DULOXETINE HYDROCHLORIDE
  3. SYMBICORT [Concomitant]
     Active Substance: BUDESONIDE\FORMOTEROL FUMARATE DIHYDRATE
  4. ACIPHEX [Concomitant]
     Active Substance: RABEPRAZOLE SODIUM
  5. LIPITOR [Concomitant]
     Active Substance: ATORVASTATIN CALCIUM
  6. FUROSEMIDE. [Concomitant]
     Active Substance: FUROSEMIDE
  7. PLAVIX [Concomitant]
     Active Substance: CLOPIDOGREL BISULFATE
  8. SPIRIVA [Concomitant]
     Active Substance: TIOTROPIUM BROMIDE MONOHYDRATE
  9. TRACLEER [Suspect]
     Active Substance: BOSENTAN
     Indication: PRODUCT USED FOR UNKNOWN INDICATION
  10. BONIVA [Concomitant]
     Active Substance: IBANDRONATE SODIUM
  11. VITAMIN D2 + CALCIUM               /00202201/ [Concomitant]
  12. ADCIRCA [Suspect]
     Active Substance: TADALAFIL
     Indication: PRODUCT USED FOR UNKNOWN INDICATION
     Dosage: UNK
     Route: 065
  13. REMODULIN [Suspect]
     Active Substance: TREPROSTINIL
     Dosage: UNK
     Route: 042
     Dates: start: 20140730, end: 20140730
  14. AMBRISENTAN [Suspect]
     Active Substance: AMBRISENTAN
     Indication: PULMONARY ARTERIAL HYPERTENSION
     Dosage: 10 MG, QD
     Route: 065
     Dates: start: 20151019
  15. POTASSIUM [Concomitant]
     Active Substance: POTASSIUM
  16. XOPENEX [Concomitant]
     Active Substance: LEVALBUTEROL HYDROCHLORIDE
  17. REMODULIN [Suspect]
     Active Substance: TREPROSTINIL
     Indication: PULMONARY ARTERIAL HYPERTENSION
     Dosage: UNK
     Route: 042
     Dates: start: 20140711, end: 20140729
  18. LASIX [Concomitant]
     Active Substance: FUROSEMIDE

REACTIONS (1)
  - Oxygen saturation decreased [Unknown]

NARRATIVE: CASE EVENT DATE: 20151026
